FAERS Safety Report 15952822 (Version 1)
Quarter: 2019Q1

REPORT INFORMATION
  Report Type: Spontaneous
  Country: FR (occurrence: FR)
  Receive Date: 20190212
  Receipt Date: 20190212
  Transmission Date: 20190417
  Serious: Yes (Other)
  Sender: FDA-Public Use
  Company Number: FR-PFIZER INC-2019054834

PATIENT
  Age: 64 Year
  Sex: Female
  Weight: 63 kg

DRUGS (5)
  1. DOLIPRANE [Concomitant]
     Active Substance: ACETAMINOPHEN
     Dosage: UNK
     Route: 048
  2. KARDEGIC [Concomitant]
     Active Substance: ASPIRIN DL-LYSINE
     Dosage: 1 DF, ONCE DAILY
     Route: 048
     Dates: start: 20180409
  3. TAHOR [Suspect]
     Active Substance: ATORVASTATIN CALCIUM
     Indication: RETINAL ARTERY OCCLUSION
     Dosage: 1 DF, ONCE DAILY
     Route: 048
     Dates: start: 20180409, end: 201810
  4. CALCIFORTE [CALCIUM CHLORIDE DIHYDRATE;CALCIUM GLUCEPTATE;CALCIUM GLUC [Concomitant]
     Dosage: 2 DF, ONCE DAILY
     Route: 048
  5. LANZOR [Concomitant]
     Active Substance: LANSOPRAZOLE
     Indication: RETINAL ARTERY OCCLUSION
     Dosage: 1 DF, ONCE DAILY
     Route: 048
     Dates: start: 20180409

REACTIONS (6)
  - Asthenia [Recovered/Resolved]
  - Diarrhoea [Recovered/Resolved]
  - Product use in unapproved indication [Unknown]
  - Pyrexia [Recovered/Resolved]
  - Cholestasis [Recovered/Resolved]
  - Headache [Recovered/Resolved]

NARRATIVE: CASE EVENT DATE: 20180409
